FAERS Safety Report 5381714-6 (Version None)
Quarter: 2007Q3

REPORT INFORMATION
  Report Type: 
  Country: None (occurrence: None)
  Receive Date: 20070709
  Receipt Date: 20070629
  Transmission Date: 20080115
  Serious: Yes (Hospitalization, Other)
  Sender: FDA-Public Use
  Company Number: PHFR2007GB02046

PATIENT
  Age: 19 Year
  Sex: Female

DRUGS (2)
  1. EXJADE [Suspect]
     Route: 065
  2. DESFERAL [Suspect]
     Route: 065

REACTIONS (2)
  - CARDIAC FAILURE [None]
  - TREATMENT NONCOMPLIANCE [None]
